FAERS Safety Report 5313201-5 (Version None)
Quarter: 2007Q2

REPORT INFORMATION
  Report Type: 
  Country: None (occurrence: None)
  Receive Date: 20070424
  Receipt Date: 20070412
  Transmission Date: 20071010
  Serious: Yes (Other)
  Sender: FDA-Public Use
  Company Number: GXKR2007AT03349

PATIENT
  Age: 58 Year
  Sex: Male
  Weight: 60 kg

DRUGS (2)
  1. CEFUROXIME [Suspect]
     Indication: PNEUMONIA
     Dosage: 2 DF, QD, ORAL
     Route: 048
     Dates: start: 20070315, end: 20070316
  2. AUGMENTIN [Suspect]
     Indication: PNEUMONIA
     Dosage: 2 DF, QD, ORAL
     Route: 048
     Dates: start: 20070313, end: 20070314

REACTIONS (2)
  - HYPERAEMIA [None]
  - PRURITUS GENERALISED [None]
